FAERS Safety Report 8041170-6 (Version None)
Quarter: 2012Q1

REPORT INFORMATION
  Report Type: 
  Country: None (occurrence: None)
  Receive Date: 20120112
  Receipt Date: 20120111
  Transmission Date: 20120608
  Serious: Yes (Death)
  Sender: FDA-Public Use
  Company Number: FR-BRISTOL-MYERS SQUIBB COMPANY-16330961

PATIENT
  Sex: Female

DRUGS (3)
  1. TRUVADA [Suspect]
     Route: 064
  2. NORVIR [Suspect]
     Route: 064
  3. REYATAZ [Suspect]
     Route: 064

REACTIONS (1)
  - CONGENITAL CENTRAL NERVOUS SYSTEM ANOMALY [None]
